FAERS Safety Report 12009361 (Version 1)
Quarter: 2016Q1

REPORT INFORMATION
  Report Type: Spontaneous
  Country: US (occurrence: None)
  Receive Date: 20160204
  Receipt Date: 20160204
  Transmission Date: 20160526
  Serious: Yes (Other)
  Sender: FDA-Public Use
  Company Number: None

PATIENT
  Age: 76 Year
  Sex: Female
  Weight: 68.49 kg

DRUGS (15)
  1. MULTIVITAMIN [Concomitant]
     Active Substance: VITAMINS
  2. CALCIUM CITRATE [Concomitant]
     Active Substance: CALCIUM CITRATE
  3. CEPHALEXIN. [Suspect]
     Active Substance: CEPHALEXIN
     Indication: URINARY TRACT INFECTION
     Route: 048
  4. EVENING PRIM ROSE OIL [Concomitant]
  5. VITAMIN C [Concomitant]
     Active Substance: ASCORBIC ACID
  6. BIOTIN [Concomitant]
     Active Substance: BIOTIN
  7. LEVOTHYROXIN [Concomitant]
     Active Substance: LEVOTHYROXINE
  8. GENERIC EVISTA RALOXIFENE HCL [Concomitant]
  9. OXYBUTENIN [Concomitant]
  10. VENVELAXNEN [Concomitant]
  11. VITAMIN D3 [Concomitant]
     Active Substance: CHOLECALCIFEROL
  12. CEPHALEXIN. [Suspect]
     Active Substance: CEPHALEXIN
     Indication: TOOTH EXTRACTION
     Route: 048
  13. DIGOX [Concomitant]
     Active Substance: DIGOXIN
  14. LUTEIN [Concomitant]
     Active Substance: LUTEIN
  15. VITAMIN E [Concomitant]
     Active Substance: .ALPHA.-TOCOPHEROL

REACTIONS (8)
  - Mucous stools [None]
  - Diarrhoea [None]
  - Disturbance in attention [None]
  - Dizziness [None]
  - Asthenia [None]
  - Haematochezia [None]
  - Clostridium difficile infection [None]
  - Disorientation [None]

NARRATIVE: CASE EVENT DATE: 201511
